FAERS Safety Report 5283346-7 (Version None)
Quarter: 2007Q1

REPORT INFORMATION
  Report Type: 
  Country: None (occurrence: None)
  Receive Date: 20070328
  Receipt Date: 20070328
  Transmission Date: 20070707
  Serious: Yes (Hospitalization)
  Sender: FDA-Public Use
  Company Number: None

PATIENT
  Sex: Female
  Weight: 76.6579 kg

DRUGS (13)
  1. IMATINIB MESYLATE [Suspect]
     Indication: OVARIAN CANCER
     Dosage: 400 MG/PER DAY  DAY 1-5,8-12  P.O.
     Route: 048
     Dates: start: 20070312, end: 20070323
  2. GEMCITABINE HCL [Suspect]
     Dosage: 880 MG  DAY 3, 10  I.V.
     Route: 042
     Dates: start: 20070314
  3. GEMCITABINE HCL [Suspect]
     Dosage: 880 MG  DAY 3, 10  I.V.
     Route: 042
     Dates: start: 20070321
  4. PROCHLORPERAZINE MALEATE [Concomitant]
  5. DOCUSATE SODIUM [Concomitant]
  6. OXYCODONE HCL/ACETAMINOPHEN [Concomitant]
  7. BEVACIZUMAB [Concomitant]
  8. MEGESTROL ACETATE [Concomitant]
  9. ATENOLOL [Concomitant]
  10. WARFARIN SODIUM [Concomitant]
  11. FUROSEMIDE [Concomitant]
  12. BEVACIZUMAB [Concomitant]
  13. CALCIUM CARBONATE [Concomitant]

REACTIONS (2)
  - CELLULITIS [None]
  - NEUTROPENIA [None]
